FAERS Safety Report 4507271-1 (Version None)
Quarter: 2004Q4

REPORT INFORMATION
  Report Type: 
  Country: None (occurrence: None)
  Receive Date: 20041025
  Receipt Date: 20040524
  Transmission Date: 20050328
  Serious: Yes (Hospitalization)
  Sender: FDA-Public Use
  Company Number: US-JNJFOC-20040505618

PATIENT
  Age: 51 Year
  Sex: Female
  Weight: 80.2867 kg

DRUGS (11)
  1. REMICADE [Suspect]
     Indication: CROHN'S DISEASE
     Dosage: INTRAVENOUS
     Route: 042
     Dates: start: 19981201
  2. REMICADE [Suspect]
     Indication: CROHN'S DISEASE
     Dosage: INTRAVENOUS
     Route: 042
     Dates: start: 20040503
  3. NEXIUM [Concomitant]
  4. LIBRAX [Concomitant]
  5. CODEINE (CODEINE) [Concomitant]
  6. DURAGESIC [Concomitant]
  7. BELLADONA (BELLADONA EXTRACT) [Concomitant]
  8. LEXIPRIL (BROMAZEPAM) [Concomitant]
  9. METHOTREXATE [Concomitant]
  10. ZEBETA [Concomitant]
  11. PREDNISONE [Concomitant]

REACTIONS (1)
  - PNEUMONIA [None]
